FAERS Safety Report 6986136-X (Version None)
Quarter: 2010Q3

REPORT INFORMATION
  Report Type: 
  Country: None (occurrence: None)
  Receive Date: 20100910
  Receipt Date: 20100902
  Transmission Date: 20110219
  Serious: Yes (Hospitalization)
  Sender: FDA-Public Use
  Company Number: 2010JP005234

PATIENT
  Age: 84 Year
  Sex: Male

DRUGS (4)
  1. VESICARE [Suspect]
     Dosage: 5 MG, UNKOWN/D, ORAL
     Route: 048
     Dates: start: 20100723
  2. LOSARTAN POTASSIUM [Concomitant]
  3. NORVASC [Concomitant]
  4. BIOFERMIN (BACILLUS SUBTILIS, LACTOBACILLUS ACIDOPHILUS, STREPTOCOCCUS [Concomitant]

REACTIONS (1)
  - RHABDOMYOLYSIS [None]
